FAERS Safety Report 25907939 (Version 4)
Quarter: 2025Q4

REPORT INFORMATION
  Report Type: Spontaneous
  Country: CL (occurrence: CL)
  Receive Date: 20251010
  Receipt Date: 20251201
  Transmission Date: 20260119
  Serious: No
  Sender: PFIZER
  Company Number: CL-PFIZER INC-202500198688

PATIENT

DRUGS (1)
  1. GENOTROPIN [Suspect]
     Active Substance: SOMATROPIN

REACTIONS (3)
  - Drug dose omission by device [Unknown]
  - Device power source issue [Unknown]
  - Device information output issue [Unknown]
